FAERS Safety Report 22342994 (Version 2)
Quarter: 2023Q2

REPORT INFORMATION
  Report Type: Report from Study
  Country: LU (occurrence: None)
  Receive Date: 20230519
  Receipt Date: 20230605
  Transmission Date: 20230722
  Serious: Yes (Hospitalization, Other)
  Sender: FDA-Public Use
  Company Number: LU-Merck Healthcare KGaA-9402129

PATIENT
  Age: 41 Year
  Sex: Female

DRUGS (1)
  1. REBIF [Suspect]
     Active Substance: INTERFERON BETA-1A
     Indication: Multiple sclerosis
     Route: 058
     Dates: start: 20161020, end: 20230320

REACTIONS (8)
  - Renal disorder [Recovering/Resolving]
  - Lower limb fracture [Recovering/Resolving]
  - Generalised oedema [Unknown]
  - Blood albumin decreased [Recovering/Resolving]
  - Thrombosis [Unknown]
  - Accident [Unknown]
  - Blood pressure abnormal [Unknown]
  - Blood potassium abnormal [Unknown]

NARRATIVE: CASE EVENT DATE: 20230201
